FAERS Safety Report 23963190 (Version 2)
Quarter: 2024Q3

REPORT INFORMATION
  Report Type: Spontaneous
  Country: GB (occurrence: GB)
  Receive Date: 20240611
  Receipt Date: 20240704
  Transmission Date: 20241017
  Serious: No
  Sender: ALCON
  Company Number: GB-002147023-NVSC2024GB105494

PATIENT
  Sex: Female

DRUGS (1)
  1. SIMBRINZA [Suspect]
     Active Substance: BRIMONIDINE TARTRATE\BRINZOLAMIDE
     Indication: Glaucoma
     Dosage: 1 DRP, BID (ONE DROP IN EACH EYE TWO TIMES A DAY)
     Dates: start: 20230817

REACTIONS (6)
  - Accidental overdose [Unknown]
  - Musculoskeletal stiffness [Unknown]
  - Arthritis [Unknown]
  - Blood pressure increased [Unknown]
  - Product use issue [Unknown]
  - Drug ineffective [Unknown]
